FAERS Safety Report 5281583-9 (Version None)
Quarter: 2007Q1

REPORT INFORMATION
  Report Type: 
  Country: None (occurrence: None)
  Receive Date: 20070330
  Receipt Date: 20070327
  Transmission Date: 20070707
  Serious: Yes (Death, Hospitalization)
  Sender: FDA-Public Use
  Company Number: 2007CG00512

PATIENT
  Age: 71 Year
  Sex: Female

DRUGS (23)
  1. NEXIUM [Suspect]
     Route: 048
     Dates: start: 20061007, end: 20061011
  2. OFLOCET [Suspect]
     Indication: ESCHERICHIA SEPSIS
     Route: 048
     Dates: start: 20061004, end: 20061014
  3. NEURONTIN [Suspect]
     Indication: AUTONOMIC NEUROPATHY
     Route: 048
     Dates: end: 20061101
  4. ARANESP [Suspect]
     Indication: ANAEMIA
     Route: 058
  5. LASIX [Suspect]
     Indication: CARDIAC FAILURE
     Route: 048
     Dates: start: 20060915, end: 20061013
  6. MINISINTROM [Suspect]
     Dates: end: 20061031
  7. LEVOTHYROXINE SODIUM [Suspect]
     Dates: end: 20061101
  8. FLUDARA [Concomitant]
     Indication: LYMPHOMA
     Dates: end: 20060628
  9. ENDOXAN [Concomitant]
     Indication: LYMPHOMA
     Dates: end: 20060628
  10. EPREX [Concomitant]
     Dates: start: 20060814, end: 20060816
  11. BACTRIM [Concomitant]
     Dates: end: 20060904
  12. LODALES [Concomitant]
     Dates: end: 20060908
  13. COZAAR [Concomitant]
     Dates: end: 20060920
  14. VALACYCLOVIR HCL [Concomitant]
     Dates: end: 20060920
  15. INIPOMP [Concomitant]
     Dates: end: 20060908
  16. ORGAMETRIL [Concomitant]
     Dates: end: 20060910
  17. GAVISCON [Concomitant]
     Dates: end: 20060911
  18. CLAFORAN [Concomitant]
     Indication: ESCHERICHIA SEPSIS
     Dates: start: 20061001, end: 20061004
  19. AMIKLIN [Concomitant]
     Indication: ESCHERICHIA SEPSIS
     Dates: start: 20061002, end: 20061004
  20. GENTAMICIN [Concomitant]
     Indication: ESCHERICHIA SEPSIS
     Dates: start: 20061002, end: 20061006
  21. ANTIHISTAMINES [Concomitant]
     Dates: start: 20060816
  22. LOCAL CORTICOSTEROID [Concomitant]
     Route: 061
     Dates: start: 20060816
  23. GALIEN'S CERATE [Concomitant]
     Route: 061
     Dates: start: 20060816

REACTIONS (1)
  - TOXIC EPIDERMAL NECROLYSIS [None]
